FAERS Safety Report 6606598-7 (Version None)
Quarter: 2010Q1

REPORT INFORMATION
  Report Type: 
  Country: None (occurrence: None)
  Receive Date: 20100226
  Receipt Date: 20100223
  Transmission Date: 20100710
  Serious: Yes (Death, Hospitalization)
  Sender: FDA-Public Use
  Company Number: PHHO2009ES07028

PATIENT
  Sex: Male
  Weight: 40 kg

DRUGS (3)
  1. ACZ885 ACZ+ [Suspect]
     Indication: RHEUMATOID ARTHRITIS
     Dosage: 300 MG, QW4
     Route: 030
     Dates: start: 20080602, end: 20090504
  2. METHOTREXATE [Concomitant]
     Indication: RHEUMATOID ARTHRITIS
     Dosage: 10 MG
     Route: 048
     Dates: start: 20070601, end: 20090504
  3. PREDNISONE [Concomitant]
     Dosage: UNK
     Route: 048
     Dates: start: 19950101

REACTIONS (10)
  - ASTHENIA [None]
  - DECREASED APPETITE [None]
  - GENERAL PHYSICAL CONDITION ABNORMAL [None]
  - LUNG ADENOCARCINOMA [None]
  - MALAISE [None]
  - MALIGNANT NEOPLASM PROGRESSION [None]
  - METASTASES TO BONE [None]
  - METASTASES TO CENTRAL NERVOUS SYSTEM [None]
  - METASTASES TO LIVER [None]
  - WEIGHT DECREASED [None]
